FAERS Safety Report 20598603 (Version 2)
Quarter: 2022Q1

REPORT INFORMATION
  Report Type: Spontaneous
  Country: US (occurrence: None)
  Receive Date: 20220315
  Receipt Date: 20220315
  Transmission Date: 20220423
  Serious: No
  Sender: FDA-Public Use
  Company Number: US-ROCHE-2811458

PATIENT
  Sex: Female

DRUGS (2)
  1. XOLAIR [Suspect]
     Active Substance: OMALIZUMAB
     Indication: Idiopathic urticaria
     Dosage: VIAL
     Route: 058
     Dates: start: 201910
  2. XOLAIR [Suspect]
     Active Substance: OMALIZUMAB
     Route: 058

REACTIONS (2)
  - Drug ineffective [Unknown]
  - No adverse event [Unknown]
